FAERS Safety Report 15492794 (Version 1)
Quarter: 2018Q4

REPORT INFORMATION
  Report Type: Spontaneous
  Country: FR (occurrence: FR)
  Receive Date: 20181012
  Receipt Date: 20181012
  Transmission Date: 20190205
  Serious: Yes (Hospitalization)
  Sender: FDA-Public Use
  Company Number: FR-JNJFOC-20181011852

PATIENT
  Age: 71 Year
  Sex: Female
  Weight: 75 kg

DRUGS (5)
  1. BISOCE [Interacting]
     Active Substance: BISOPROLOL
     Indication: ACUTE CORONARY SYNDROME
     Route: 048
     Dates: start: 20180629
  2. HALDOL [Suspect]
     Active Substance: HALOPERIDOL
     Indication: MENTAL DISORDER
     Route: 048
  3. PRADAXA [Suspect]
     Active Substance: DABIGATRAN ETEXILATE MESYLATE
     Indication: ATRIAL FIBRILLATION
     Route: 048
     Dates: end: 20180824
  4. BISOCE [Interacting]
     Active Substance: BISOPROLOL
     Indication: ACUTE CORONARY SYNDROME
     Route: 048
  5. LASILIX [Interacting]
     Active Substance: FUROSEMIDE
     Indication: ACUTE CORONARY SYNDROME
     Route: 048
     Dates: start: 20180629, end: 20180828

REACTIONS (3)
  - Drug interaction [Unknown]
  - Fall [Recovering/Resolving]
  - Subarachnoid haemorrhage [Recovered/Resolved]

NARRATIVE: CASE EVENT DATE: 20180705
